FAERS Safety Report 6016303-3 (Version None)
Quarter: 2008Q4

REPORT INFORMATION
  Report Type: 
  Country: None (occurrence: None)
  Receive Date: 20081218
  Receipt Date: 20081203
  Transmission Date: 20090506
  Serious: Yes (Hospitalization)
  Sender: FDA-Public Use
  Company Number: KV200800908

PATIENT
  Age: 75 Year
  Sex: Female

DRUGS (19)
  1. ISOSORBIDE MONONITRATE [Suspect]
     Indication: DRUG USE FOR UNKNOWN INDICATION
     Dosage: 60 MG, QD, ORAL
     Route: 048
     Dates: end: 20081120
  2. ANALGESICS CREAM [Concomitant]
  3. NITROGLYCERIN [Concomitant]
  4. MAGONATE (MAGNESIUM GLUCONATE) [Concomitant]
  5. ISOSORBIDE (ISOSORBIDE) [Concomitant]
  6. DILTIAZEM [Concomitant]
  7. LIPITOR [Concomitant]
  8. METFORMIN HCL [Concomitant]
  9. FUROSEMIDE [Concomitant]
  10. ELAVIL /00002202/ (AMITRIPTYLINE HYDROCHLORIDE) [Concomitant]
  11. ASPIRIN [Concomitant]
  12. WARFARIN SODIUM [Concomitant]
  13. ADVAIR DISKUS 100/50 [Concomitant]
  14. THEOPHYLLINE [Concomitant]
  15. XANAX [Concomitant]
  16. CALCIUM (CALCIUM) [Concomitant]
  17. FLONASE [Concomitant]
  18. ALBUTEROL /00139501 (SALBUTAMOL) [Concomitant]
  19. FEXOFENADINE HCL [Concomitant]

REACTIONS (5)
  - FALL [None]
  - HYPOTENSION [None]
  - LOSS OF CONSCIOUSNESS [None]
  - PRODUCT QUALITY ISSUE [None]
  - SYNCOPE [None]
